FAERS Safety Report 9263182 (Version 1)
Quarter: 2013Q2

REPORT INFORMATION
  Report Type: Spontaneous
  Country: US (occurrence: None)
  Receive Date: 20130426
  Receipt Date: 20130426
  Transmission Date: 20140414
  Serious: Yes (Hospitalization)
  Sender: FDA-Public Use
  Company Number: None

PATIENT
  Age: 84 Year
  Sex: Female
  Weight: 70 kg

DRUGS (1)
  1. PROPOFOL [Suspect]

REACTIONS (4)
  - Swollen tongue [None]
  - Dyspnoea [None]
  - Swelling [None]
  - No therapeutic response [None]
